FAERS Safety Report 11819712 (Version 1)
Quarter: 2015Q4

REPORT INFORMATION
  Report Type: Spontaneous
  Country: US (occurrence: US)
  Receive Date: 20151210
  Receipt Date: 20151210
  Transmission Date: 20160305
  Serious: No
  Sender: FDA-Public Use
  Company Number: US-JNJFOC-20151127052

PATIENT
  Sex: Female

DRUGS (1)
  1. TOPAMAX [Suspect]
     Active Substance: TOPIRAMATE
     Indication: ANXIETY
     Route: 048
     Dates: start: 201502, end: 201510

REACTIONS (2)
  - Drug screen positive [Unknown]
  - Product use issue [Unknown]

NARRATIVE: CASE EVENT DATE: 2015
